FAERS Safety Report 18563899 (Version 2)
Quarter: 2020Q4

REPORT INFORMATION
  Report Type: Spontaneous
  Country: CN (occurrence: CN)
  Receive Date: 20201201
  Receipt Date: 20201208
  Transmission Date: 20210114
  Serious: Yes (Life-Threatening, Hospitalization, Other)
  Sender: FDA-Public Use
  Company Number: CN-ACCORD-209312

PATIENT
  Age: 73 Year
  Sex: Male
  Weight: 51 kg

DRUGS (4)
  1. OXALIPLATIN. [Suspect]
     Active Substance: OXALIPLATIN
     Indication: RECTAL CANCER
     Dosage: D1, 150 MG D1, 20-JUL-2019 TO 27-AUG-2019
     Dates: start: 20190326, end: 20190622
  2. NIFEDIPINE. [Concomitant]
     Active Substance: NIFEDIPINE
     Indication: HYPERTENSION
     Route: 048
  3. CAPECITABINE. [Suspect]
     Active Substance: CAPECITABINE
     Indication: RECTAL CANCER
     Dosage: 1.5 G TWICE A DAY D1-D14, 1.5 G TWICE A DAY ON 29-AUG-2019 FOR 3 DAYS
     Dates: start: 20190720, end: 20190827
  4. TEGAFUR/GIMERACIL/OTERACIL POTASSIUM [Suspect]
     Active Substance: GIMERACIL\OTERACIL\TEGAFUR
     Indication: RECTAL CANCER
     Dosage: TWICE A D1-D14, 50 MG TWICE A DAY ON 29-AUG-2019 FOR 3 DAYS
     Dates: start: 20190326, end: 20190622

REACTIONS (11)
  - Palmar-plantar erythrodysaesthesia syndrome [Recovering/Resolving]
  - Blister [Recovering/Resolving]
  - Pyrexia [Recovering/Resolving]
  - Febrile neutropenia [Recovering/Resolving]
  - Ventricular flutter [Recovering/Resolving]
  - Stomatitis [Recovering/Resolving]
  - Thrombocytopenia [Recovered/Resolved]
  - Supraventricular extrasystoles [Recovering/Resolving]
  - Overdose [Unknown]
  - Neutropenia [Recovered/Resolved]
  - Diarrhoea [Recovering/Resolving]

NARRATIVE: CASE EVENT DATE: 2019
